FAERS Safety Report 13486379 (Version 1)
Quarter: 2017Q2

REPORT INFORMATION
  Report Type: Spontaneous
  Country: RU (occurrence: RU)
  Receive Date: 20170426
  Receipt Date: 20170426
  Transmission Date: 20170830
  Serious: Yes (Other)
  Sender: FDA-Public Use
  Company Number: RU-BAYER-2017-074306

PATIENT
  Age: 35 Year
  Sex: Female

DRUGS (3)
  1. YARINA [Suspect]
     Active Substance: DROSPIRENONE\ETHINYL ESTRADIOL
     Indication: MENORRHAGIA
  2. YARINA [Suspect]
     Active Substance: DROSPIRENONE\ETHINYL ESTRADIOL
     Indication: MENSTRUAL DISORDER
     Route: 048
  3. DICYNONE [Concomitant]
     Active Substance: ETHAMSYLATE

REACTIONS (5)
  - Nausea [None]
  - Loss of consciousness [None]
  - Peripheral coldness [None]
  - Pallor [None]
  - Off label use [None]
